FAERS Safety Report 11982206 (Version 1)
Quarter: 2016Q1

REPORT INFORMATION
  Report Type: Report from Study
  Country: US (occurrence: US)
  Receive Date: 20160201
  Receipt Date: 20160201
  Transmission Date: 20160526
  Serious: No
  Sender: FDA-Public Use
  Company Number: US-AMGEN-USASL2016008399

PATIENT
  Age: 58 Year
  Sex: Male

DRUGS (1)
  1. ENBREL [Suspect]
     Active Substance: ETANERCEPT
     Indication: PSORIASIS
     Dosage: 50 MG, 2 TIMES/WK
     Route: 065
     Dates: start: 201509, end: 201512

REACTIONS (5)
  - Erythema [Unknown]
  - Drug ineffective [Unknown]
  - Skin exfoliation [Unknown]
  - Skin irritation [Unknown]
  - Macule [Unknown]

NARRATIVE: CASE EVENT DATE: 201512
